FAERS Safety Report 6045355-X (Version None)
Quarter: 2009Q1

REPORT INFORMATION
  Report Type: 
  Country: None (occurrence: None)
  Receive Date: 20090121
  Receipt Date: 20090109
  Transmission Date: 20090719
  Serious: Yes (Life-Threatening, Other)
  Sender: FDA-Public Use
  Company Number: US-WYE-H07602309

PATIENT
  Age: 39 Year
  Sex: Male
  Weight: 72.64 kg

DRUGS (4)
  1. EFFEXOR XR [Suspect]
     Indication: DEPRESSION
     Dosage: UNKNOWN
     Route: 048
  2. EFFEXOR XR [Suspect]
     Indication: ANXIETY
     Route: 048
     Dates: start: 20081127, end: 20081130
  3. EFFEXOR XR [Suspect]
     Indication: SUICIDAL IDEATION
     Dosage: UNKNOWN
     Route: 048
     Dates: start: 20081202, end: 20081201
  4. TRAMADOL HCL [Suspect]
     Indication: BACK PAIN
     Route: 048
     Dates: start: 20081105, end: 20081130

REACTIONS (6)
  - AGGRESSION [None]
  - CHEST PAIN [None]
  - DRUG WITHDRAWAL SYNDROME [None]
  - MENTAL DISORDER [None]
  - MUSCLE SPASMS [None]
  - SEROTONIN SYNDROME [None]
